FAERS Safety Report 20665592 (Version 11)
Quarter: 2022Q4

REPORT INFORMATION
  Report Type: Spontaneous
  Country: CA (occurrence: CA)
  Receive Date: 20220402
  Receipt Date: 20221128
  Transmission Date: 20230113
  Serious: Yes (Hospitalization)
  Sender: FDA-Public Use
  Company Number: CA-CELLTRION INC.-2022CA003772

PATIENT

DRUGS (10)
  1. INFLECTRA [Suspect]
     Active Substance: INFLIXIMAB-DYYB
     Indication: Crohn^s disease
     Dosage: 1 DF (UNKNOWN DOSES RECEIVED IN HOSPITAL)
     Route: 042
     Dates: start: 20220312, end: 20220324
  2. INFLECTRA [Suspect]
     Active Substance: INFLIXIMAB-DYYB
     Indication: Inflammatory bowel disease
     Dosage: 1 DF (UNKNOWN DOSES RECEIVED IN HOSPITAL)
     Route: 042
     Dates: start: 20220318
  3. INFLECTRA [Suspect]
     Active Substance: INFLIXIMAB-DYYB
     Indication: Colitis ulcerative
     Dosage: 10 MG/KG (600MG EVERY 4 WEEKS, 2 WEEKS FROM LAST DOSE IF POSSIBLE AND THEN Q4 W MOVING FORWARD
     Route: 042
     Dates: start: 20220413
  4. INFLECTRA [Suspect]
     Active Substance: INFLIXIMAB-DYYB
     Dosage: 600 MG, EVERY 4 WEEKS
     Route: 042
     Dates: start: 20220527
  5. INFLECTRA [Suspect]
     Active Substance: INFLIXIMAB-DYYB
     Dosage: 600 MG, EVERY 4 WEEKS
     Route: 042
     Dates: start: 20220819
  6. INFLECTRA [Suspect]
     Active Substance: INFLIXIMAB-DYYB
     Dosage: 600 MG, EVERY 4 WEEKS
     Route: 042
     Dates: start: 20221015
  7. INFLECTRA [Suspect]
     Active Substance: INFLIXIMAB-DYYB
     Dosage: 600 MG, EVERY 4 WEEKS
     Route: 042
     Dates: start: 2022
  8. INFLECTRA [Suspect]
     Active Substance: INFLIXIMAB-DYYB
     Dosage: 600 MG, EVERY 4 WEEKS
     Route: 042
     Dates: start: 20221119
  9. ADVIL [Concomitant]
     Active Substance: IBUPROFEN
     Indication: Premedication
     Dosage: UNK
     Dates: start: 20220413, end: 20220413
  10. BENADRYL [Concomitant]
     Active Substance: DIPHENHYDRAMINE HYDROCHLORIDE
     Indication: Premedication
     Dosage: UNK
     Dates: start: 20220413, end: 20220413

REACTIONS (32)
  - Pyrexia [Unknown]
  - Infection [Unknown]
  - Infusion related reaction [Unknown]
  - Inappropriate schedule of product administration [Unknown]
  - Intentional product use issue [Unknown]
  - Off label use [Unknown]
  - Off label use [Unknown]
  - Abdominal pain [Not Recovered/Not Resolved]
  - Nausea [Not Recovered/Not Resolved]
  - Vomiting [Not Recovered/Not Resolved]
  - Condition aggravated [Unknown]
  - C-reactive protein increased [Unknown]
  - Oropharyngeal pain [Unknown]
  - Ear pain [Unknown]
  - Headache [Unknown]
  - Paranasal sinus discomfort [Unknown]
  - Peripheral swelling [Unknown]
  - Pain [Unknown]
  - Oedema peripheral [Unknown]
  - Palpitations [Unknown]
  - Heart rate increased [Unknown]
  - Chest pain [Unknown]
  - Drug level above therapeutic [Unknown]
  - Heart rate decreased [Unknown]
  - Chills [Recovered/Resolved]
  - Urticaria [Recovered/Resolved]
  - Rash [Not Recovered/Not Resolved]
  - Rash [Not Recovered/Not Resolved]
  - Alopecia [Not Recovered/Not Resolved]
  - Infusion related reaction [Not Recovered/Not Resolved]
  - Urticaria [Recovered/Resolved]
  - Pruritus [Recovered/Resolved]

NARRATIVE: CASE EVENT DATE: 20220101
